FAERS Safety Report 5235039-X (Version None)
Quarter: 2007Q1

REPORT INFORMATION
  Report Type: 
  Country: None (occurrence: None)
  Receive Date: 20070207
  Receipt Date: 20070131
  Transmission Date: 20070707
  Serious: Yes (Hospitalization)
  Sender: FDA-Public Use
  Company Number: 070012

PATIENT
  Age: 75 Year
  Sex: Female
  Weight: 62.5964 kg

DRUGS (8)
  1. HALFLYTELY [Suspect]
     Indication: COLONOSCOPY
     Dosage: 20 MG/2L, 1X, PO
     Route: 048
     Dates: start: 20061129
  2. METOPROLOL TARPRATE [Concomitant]
  3. GENERIC PRAVIX-CLOPIBOGREL (FOR STENT) [Concomitant]
  4. PRAVASTATIN [Concomitant]
  5. SODIUM [Concomitant]
  6. ENALAPRIL MALEATE [Concomitant]
  7. MALELTE 5MG TABLET (GENERIC BASOTEC) [Concomitant]
  8. ASPIRIN [Concomitant]

REACTIONS (9)
  - ABDOMINAL PAIN UPPER [None]
  - ASTHENIA [None]
  - COLITIS ISCHAEMIC [None]
  - DYSSTASIA [None]
  - FEELING COLD [None]
  - HAEMORRHAGE [None]
  - HYPERHIDROSIS [None]
  - THROMBOSIS [None]
  - VOMITING [None]
